FAERS Safety Report 6784348-1 (Version None)
Quarter: 2010Q2

REPORT INFORMATION
  Report Type: 
  Country: None (occurrence: None)
  Receive Date: 20100622
  Receipt Date: 20100608
  Transmission Date: 20101027
  Serious: Yes (Disabling, Other)
  Sender: FDA-Public Use
  Company Number: US-MERCK-1005USA02546

PATIENT
  Age: 7 Year
  Sex: Male

DRUGS (2)
  1. SINGULAIR [Suspect]
     Indication: ASTHMA
     Route: 048
     Dates: start: 20080101, end: 20080101
  2. SINGULAIR [Suspect]
     Route: 048
     Dates: start: 20100401, end: 20100513

REACTIONS (3)
  - ASTHMA [None]
  - BLINDNESS [None]
  - CONVULSION [None]
